FAERS Safety Report 23471400 (Version 1)
Quarter: 2024Q1

REPORT INFORMATION
  Report Type: Spontaneous
  Country: US (occurrence: None)
  Receive Date: 20240202
  Receipt Date: 20240202
  Transmission Date: 20240409
  Serious: No
  Sender: FDA-Public Use
  Company Number: None

PATIENT
  Age: 38 Year
  Sex: Female
  Weight: 93.44 kg

DRUGS (1)
  1. RITALIN [Suspect]
     Active Substance: METHYLPHENIDATE HYDROCHLORIDE
     Indication: Attention deficit hyperactivity disorder
     Dosage: 1 CAPSULE QD EVERY DAY PO?
     Route: 048
     Dates: start: 20160210, end: 20160222

REACTIONS (2)
  - Agitation [None]
  - Restlessness [None]

NARRATIVE: CASE EVENT DATE: 20160222
